FAERS Safety Report 14600119 (Version 1)
Quarter: 2018Q1

REPORT INFORMATION
  Report Type: Spontaneous
  Country: HU (occurrence: HU)
  Receive Date: 20180305
  Receipt Date: 20180305
  Transmission Date: 20180509
  Serious: Yes (Other)
  Sender: FDA-Public Use
  Company Number: HU-TEVA-2018-HU-864626

PATIENT
  Age: 5 Month
  Sex: Female

DRUGS (2)
  1. TOBRAMYCIN. [Suspect]
     Active Substance: TOBRAMYCIN
     Indication: PSEUDOMONAL SEPSIS
     Route: 065
  2. AMPICILLIN [Suspect]
     Active Substance: AMPICILLIN
     Indication: PSEUDOMONAL SEPSIS
     Route: 065

REACTIONS (4)
  - Condition aggravated [Unknown]
  - Perineal necrosis [Unknown]
  - Erythema nodosum [Unknown]
  - Drug ineffective [Recovered/Resolved]
